FAERS Safety Report 16832111 (Version 4)
Quarter: 2019Q4

REPORT INFORMATION
  Report Type: Spontaneous
  Country: US (occurrence: US)
  Receive Date: 20190920
  Receipt Date: 20191104
  Transmission Date: 20200122
  Serious: Yes (Hospitalization, Other)
  Sender: FDA-Public Use
  Company Number: US-GILEAD-2019-0429230

PATIENT
  Age: 42 Year
  Sex: Male

DRUGS (5)
  1. HARVONI [Suspect]
     Active Substance: LEDIPASVIR\SOFOSBUVIR
     Indication: CHRONIC HEPATITIS C
     Dosage: 15 DOSAGE FORM, QD
     Route: 048
  2. OLANZAPINE. [Concomitant]
     Active Substance: OLANZAPINE
  3. GLYCOPYRROLATE [GLYCOPYRRONIUM] [Concomitant]
     Active Substance: GLYCOPYRRONIUM
  4. HARVONI [Suspect]
     Active Substance: LEDIPASVIR\SOFOSBUVIR
     Dosage: 1 DOSAGE FORM, QD
     Route: 048
     Dates: start: 201907, end: 20190801
  5. PROAIR HFA [Concomitant]
     Active Substance: ALBUTEROL SULFATE

REACTIONS (5)
  - Hallucination [Unknown]
  - Amphetamines positive [Unknown]
  - Overdose [Unknown]
  - Psychotic disorder [Unknown]
  - Product dose omission [Not Recovered/Not Resolved]

NARRATIVE: CASE EVENT DATE: 20190801
